FAERS Safety Report 6016306-9 (Version None)
Quarter: 2008Q4

REPORT INFORMATION
  Report Type: 
  Country: None (occurrence: None)
  Receive Date: 20081218
  Receipt Date: 20081203
  Transmission Date: 20090506
  Serious: Yes (Hospitalization)
  Sender: FDA-Public Use
  Company Number: KV200800910

PATIENT
  Age: 62 Year
  Sex: Female
  Weight: 81.6 kg

DRUGS (17)
  1. ISOSORBIDE MONONITRATE [Suspect]
     Indication: ANGINA PECTORIS
     Dosage: 30 MG, QD, ORAL
     Route: 048
     Dates: end: 20081001
  2. PROPANOLOL /00030001/ (PROPRANOLOL) [Concomitant]
  3. DILTIAZEM [Concomitant]
  4. PROZAC /00724401/ (FLUOXETINE) [Concomitant]
  5. GLIMEPIRIDE [Concomitant]
  6. PROTONIX /01263201/ (PANTOPRAZOLE) [Concomitant]
  7. CYMBALTA [Concomitant]
  8. AMITZA (LUBIPROSTONE) [Concomitant]
  9. DAPSONE [Concomitant]
  10. HYDROCHLOROTHIAIZDE (HYDROCHLOROTHIAZIDE) [Concomitant]
  11. CYCLOBENZAPRINE [Concomitant]
  12. ASPIRIN [Concomitant]
  13. SIMVASTATIN [Concomitant]
  14. VITAMIN B12 /00056201/ (CYANOCOBALAMIN) [Concomitant]
  15. MULTIVITAMIN /00831701/ (VITAMINS NOS) [Concomitant]
  16. COQ10 (UBIDECARENONE) [Concomitant]
  17. CALCIUM (CALCIUM) [Concomitant]

REACTIONS (5)
  - CONCUSSION [None]
  - DIZZINESS [None]
  - FALL [None]
  - HEADACHE [None]
  - PRODUCT QUALITY ISSUE [None]
